FAERS Safety Report 24684868 (Version 2)
Quarter: 2025Q1

REPORT INFORMATION
  Report Type: Spontaneous
  Country: US (occurrence: US)
  Receive Date: 20241202
  Receipt Date: 20250113
  Transmission Date: 20250408
  Serious: Yes (Other)
  Sender: BRISTOL-MYERS SQUIBB COMPANY
  Company Number: US-BRISTOL-MYERS SQUIBB COMPANY-2024-182763

PATIENT
  Age: 63 Year
  Sex: Male

DRUGS (14)
  1. LENALIDOMIDE [Suspect]
     Active Substance: LENALIDOMIDE
     Indication: Plasma cell myeloma
     Dates: start: 20241022, end: 202411
  2. ACYCLOVIR [Concomitant]
     Active Substance: ACYCLOVIR
     Indication: Prophylaxis
     Dosage: 180 FOR 90 DAYS. SIG: TAKE ONE TABLET BY MOUTH TWO TIMES A DAY WITH FOOD
     Route: 048
  3. AMLODIPINE BESYLATE [Concomitant]
     Active Substance: AMLODIPINE BESYLATE
     Indication: Product used for unknown indication
     Dosage: 90 FOR 90 DAYS. SIG: TAKE ONE TABLET BY MOUTH ONCE?EVERY DAY
     Route: 048
  4. ATORVASTATIN CALCIUM [Concomitant]
     Active Substance: ATORVASTATIN CALCIUM
     Indication: Product used for unknown indication
     Dosage: 90 FOR 90 DAYS. SIG: TAKE ONE TABLET BY MOUTH ONCE EVERY DAY
     Route: 048
  5. BENZONATATE [Concomitant]
     Active Substance: BENZONATATE
     Indication: Cough
     Dosage: 90 FOR 30 DAYS. SIG: TAKE ONE CAPSULE BY MOUTH THREE TIMES A DAY SWALLON WHOLE DO NOT CUT
     Route: 048
  6. BIKTARVY [Concomitant]
     Active Substance: BICTEGRAVIR SODIUM\EMTRICITABINE\TENOFOVIR ALAFENAMIDE FUMARATE
     Indication: Product used for unknown indication
     Dosage: 50/100/ 25 90 FOR 90 DAYS. SIG: TAKE 1 TABLET BY MOUTH ONCE EVERY DAY
     Route: 048
  7. CICLOPIROX [Concomitant]
     Active Substance: CICLOPIROX
     Indication: Onychomycosis
     Dosage: APPLY SMALL AMOUNT TOPICALLY ONCE EVERY DAY FOR TOENAIL FUNGUS. REMOVE ONCE PER WEEK WITH ISOPROPYL
     Route: 061
  8. UREA [Concomitant]
     Active Substance: UREA
     Indication: Hyperkeratosis
     Dosage: 90 FOR 90 DAYS APPLY SMALL AMOUNT TOPICALLY ONCE EVERY DAY. APPLY DIRECTLY TO WITH OR WITHOUT?OCCLUS
     Route: 061
  9. TADALAFIL [Concomitant]
     Active Substance: TADALAFIL
     Indication: Product used for unknown indication
     Dosage: 18 FOR 90 DAYS SIG: TAKE ONE TABLET BY MOUTH AS DIRECTED 1 HOUR BEFORE SEXUAL ACTIVITY. DO NOT TAKE
     Route: 048
  10. SULFAMETHOXAZOLE\TRIMETHOPRIM [Concomitant]
     Active Substance: SULFAMETHOXAZOLE\TRIMETHOPRIM
     Indication: Prophylaxis
     Dosage: 36 FOR 90 DAYS SIG: TAKE 1 TABLET BY MOUTH?MONDAY, WEDNESDAY, FRIDAY
     Route: 048
  11. PROCHLORPERAZINE MALEATE [Concomitant]
     Active Substance: PROCHLORPERAZINE MALEATE
     Indication: Product used for unknown indication
     Dosage: TAKE ONE TABLET BY MOUTH EVERY 6 HOURS AS NEEDED
     Route: 048
  12. ONDANSETRON HYDROCHLORIDE [Concomitant]
     Active Substance: ONDANSETRON HYDROCHLORIDE
     Indication: Product used for unknown indication
     Dosage: TAKE ONE TABLET BY MOUTH EVERY 8 HOURS?AS NEEDED
     Route: 048
  13. OMEPRAZOLE [Concomitant]
     Active Substance: OMEPRAZOLE
     Indication: Dyspepsia
     Dosage: 90 FOR 90 DAYS SIG: TAKE ONE CAPSULE BY MOUTH IN THE MORNING TAKE 30 MINUTES BEFORE A MEAL
     Route: 048
  14. METFORMIN HYDROCHLORIDE [Concomitant]
     Active Substance: METFORMIN HYDROCHLORIDE
     Indication: Product used for unknown indication
     Dosage: 24H SA, 90 FOR 90 DAYS SIG: TAKE ONE TABLET BY MOUTH ONCE EVERY DAY WITH DINNER
     Route: 048

REACTIONS (1)
  - Neutropenia [Recovered/Resolved]

NARRATIVE: CASE EVENT DATE: 20241103
